FAERS Safety Report 8458207 (Version 2)
Quarter: 2013Q2

REPORT INFORMATION
  Report Type: Spontaneous
  Country: US (occurrence: None)
  Receive Date: 20120227
  Receipt Date: 20120827
  Transmission Date: 20140414
  Serious: Yes (Other)
  Sender: FDA-Public Use
  Company Number: 338311

PATIENT
  Age: 64 Year
  Sex: Male
  Weight: 117.4 kg

DRUGS (7)
  1. VICTOZA [Suspect]
     Indication: PRODUCT USED FOR UNKNOWN INDICATION
     Dosage: , SUBCUTANEOUS
     Route: 058
     Dates: start: 20110920
  2. WARFARIN (WARFARIN) [Concomitant]
  3. METFORMIN (METFORMIN) [Concomitant]
  4. METOPROLOL (METOPROLOL) [Concomitant]
  5. LISINOPRIL + HIDROCLOROTIAZIDA (HYDROCHLOROTHIAZIDE, LISINOPRIL) [Concomitant]
  6. LANTUS (INSULIN GLARGINE) [Concomitant]
  7. LEVITRA (VARDENAFIL HYDROCHLORIDE) [Concomitant]

REACTIONS (1)
  - PANCREATITIS [None]
